FAERS Safety Report 4322956-8 (Version None)
Quarter: 2004Q1

REPORT INFORMATION
  Report Type: 
  Country: None (occurrence: None)
  Receive Date: 20040322
  Receipt Date: 20040311
  Transmission Date: 20041129
  Serious: Yes (Death, Hospitalization)
  Sender: FDA-Public Use
  Company Number: US-SHR-04-020865

PATIENT
  Age: 65 Year
  Sex: Female
  Weight: 74.8 kg

DRUGS (7)
  1. BETASERON [Suspect]
     Indication: MULTIPLE SCLEROSIS
     Dosage: 2.4 MIU, EVERY 2D, SUBCUTANEOUS
     Route: 058
     Dates: start: 20011001, end: 20031221
  2. NIFEDICAL [Concomitant]
  3. ATROPINE [Concomitant]
  4. DITROPAN XL [Concomitant]
  5. HYDROCHLORZIDE [Concomitant]
  6. LIPITOR [Concomitant]
  7. FERROUS SULFATE TAB [Concomitant]

REACTIONS (6)
  - CONDITION AGGRAVATED [None]
  - DIABETES MELLITUS [None]
  - MULTIPLE SCLEROSIS [None]
  - PNEUMONIA [None]
  - RESPIRATORY FAILURE [None]
  - URINARY TRACT INFECTION [None]
